FAERS Safety Report 17730564 (Version 3)
Quarter: 2020Q3

REPORT INFORMATION
  Report Type: Spontaneous
  Country: PL (occurrence: PL)
  Receive Date: 20200430
  Receipt Date: 20200703
  Transmission Date: 20201102
  Serious: Yes (Hospitalization)
  Sender: FDA-Public Use
  Company Number: PL-ASTRAZENECA-2020SE57828

PATIENT
  Age: 32 Year
  Sex: Male

DRUGS (7)
  1. PERAZINE [Interacting]
     Active Substance: PERAZINE
     Indication: SLEEP DISORDER
     Route: 065
  2. PROMETHAZINE [Interacting]
     Active Substance: PROMETHAZINE HYDROCHLORIDE
     Indication: COUGH
     Route: 065
  3. DEXTRAMETHORPHAN [Interacting]
     Active Substance: DEXTROMETHORPHAN
     Indication: ANTITUSSIVE THERAPY
     Route: 065
  4. ESCITALOPRAM [Interacting]
     Active Substance: ESCITALOPRAM OXALATE
     Indication: DEPRESSION
     Route: 065
  5. PARACETAMOL, PSEUDOFEDRYNE AND CHLROFENIRAMINE MALEATE [Interacting]
     Active Substance: ACETAMINOPHEN\CHLORPHENIRAMINE MALEATE\PSEUDOEPHEDRINE
     Indication: UPPER RESPIRATORY TRACT INFECTION
     Route: 065
  6. METAMIZOLE [Interacting]
     Active Substance: METAMIZOLE
     Indication: PYREXIA
     Route: 065
  7. ESOMEPRAZOLE. [Suspect]
     Active Substance: ESOMEPRAZOLE MAGNESIUM
     Indication: ABDOMINAL PAIN UPPER
     Route: 048

REACTIONS (3)
  - Drug interaction [Recovered/Resolved]
  - Labelled drug-drug interaction medication error [Recovered/Resolved]
  - Serotonin syndrome [Recovered/Resolved]
